FAERS Safety Report 9574956 (Version 1)
Quarter: 2013Q4

REPORT INFORMATION
  Report Type: Spontaneous
  Country: FR (occurrence: FR)
  Receive Date: 20131001
  Receipt Date: 20131001
  Transmission Date: 20140711
  Serious: Yes (Death, Hospitalization)
  Sender: FDA-Public Use
  Company Number: FR-WATSON-2013-17451

PATIENT
  Sex: Female

DRUGS (11)
  1. CIPROFLOXACIN AG [Suspect]
     Indication: PRODUCT USED FOR UNKNOWN INDICATION
     Dosage: 500 MG, DAILY
     Route: 065
     Dates: start: 20121228, end: 20130103
  2. VALACICLOVIR [Suspect]
     Indication: PRODUCT USED FOR UNKNOWN INDICATION
     Dosage: 250 MG, DAILY
     Route: 048
     Dates: start: 20121227, end: 20130105
  3. MIANSERIN [Suspect]
     Indication: PRODUCT USED FOR UNKNOWN INDICATION
     Dosage: 30 MG, DAILY
     Route: 048
     Dates: start: 20121226, end: 20130105
  4. AMOXICILLINE/ACIDE CLAVULANIQUE SANDOZ [Suspect]
     Indication: PNEUMONIA ASPIRATION
     Dosage: UNK
     Route: 042
     Dates: start: 20121226, end: 20121228
  5. PIPERACILLINE/TAZOBACTAM KABI [Suspect]
     Indication: PNEUMONIA ASPIRATION
     Dosage: 4 G, BID
     Route: 042
     Dates: start: 20121228, end: 20121231
  6. IMIPENEM CILASTATINE MYLAN [Suspect]
     Indication: PRODUCT USED FOR UNKNOWN INDICATION
     Dosage: 15 ML, BID
     Route: 042
     Dates: start: 20130101, end: 20130105
  7. EUPANTOL [Suspect]
     Indication: GASTROOESOPHAGEAL REFLUX DISEASE
     Dosage: 40 MG, DAILY
     Route: 048
     Dates: start: 20121226, end: 20121227
  8. EUPANTOL [Suspect]
     Dosage: 40 MG, BID
     Route: 048
     Dates: start: 20121228, end: 20130105
  9. DOLIPRANE [Suspect]
     Indication: PRODUCT USED FOR UNKNOWN INDICATION
     Dosage: UNK
     Route: 048
     Dates: start: 20121226, end: 20130105
  10. SERESTA [Suspect]
     Indication: PRODUCT USED FOR UNKNOWN INDICATION
     Dosage: 10 MG, UNK
     Route: 048
     Dates: start: 20121226, end: 20130105
  11. CORTANCYL [Suspect]
     Indication: PRODUCT USED FOR UNKNOWN INDICATION
     Dosage: 5 MG, DAILY
     Route: 048
     Dates: start: 20121227, end: 20130105

REACTIONS (1)
  - Bicytopenia [Fatal]
